FAERS Safety Report 6480832-9 (Version None)
Quarter: 2009Q4

REPORT INFORMATION
  Report Type: 
  Country: None (occurrence: None)
  Receive Date: 20091203
  Receipt Date: 20091120
  Transmission Date: 20100525
  Serious: Yes (Hospitalization, Other)
  Sender: FDA-Public Use
  Company Number: TPA2009A03903

PATIENT
  Age: 44 Year
  Sex: Female
  Weight: 67.1324 kg

DRUGS (11)
  1. PREVACID [Suspect]
     Indication: GASTROOESOPHAGEAL REFLUX DISEASE
     Dosage: 30 MG, 2 IN 1 D, PER ORAL
     Route: 048
     Dates: end: 20090701
  2. CELEBREX [Concomitant]
  3. SINGULAIR [Concomitant]
  4. DIOVAN (ALL OTHER THERAPEUTIC PRODUCTS) [Concomitant]
  5. PREDNISONE [Concomitant]
  6. CLARITIN [Concomitant]
  7. ALBUTEROL INHALER (SALBUTAMOL) [Concomitant]
  8. ADVAIR DISKUS 100/50 [Concomitant]
  9. COMBIVENT [Concomitant]
  10. HYDROCODONE (HYDROCODONE) [Concomitant]
  11. XANAX [Concomitant]

REACTIONS (8)
  - BACK PAIN [None]
  - CARDIAC FAILURE CONGESTIVE [None]
  - COMA [None]
  - DYSPNOEA [None]
  - GANGRENE [None]
  - GASTROINTESTINAL DISORDER [None]
  - RENAL FAILURE [None]
  - THROMBOSIS [None]
